APPROVED DRUG PRODUCT: NAPROXEN
Active Ingredient: NAPROXEN
Strength: 500MG
Dosage Form/Route: TABLET, DELAYED RELEASE;ORAL
Application: A218497 | Product #002 | TE Code: AB
Applicant: NOVITIUM PHARMA LLC
Approved: Jun 12, 2024 | RLD: No | RS: No | Type: RX